FAERS Safety Report 10430934 (Version 2)
Quarter: 2014Q3

REPORT INFORMATION
  Report Type: Spontaneous
  Country: IT (occurrence: IT)
  Receive Date: 20140904
  Receipt Date: 20140908
  Transmission Date: 20150326
  Serious: Yes (Hospitalization)
  Sender: FDA-Public Use
  Company Number: IT-TEVA-504771ISR

PATIENT
  Age: 58 Year
  Sex: Male

DRUGS (7)
  1. AGGRENOX [Suspect]
     Active Substance: ASPIRIN\DIPYRIDAMOLE
     Indication: INTENTIONAL SELF-INJURY
     Dosage: 1 DOSAGE FORM = ASPIRIN 25 MG + DIPYRIDAMOLE 200 MG
     Route: 048
     Dates: start: 20130921, end: 20130921
  2. KEPPRA [Suspect]
     Active Substance: LEVETIRACETAM
     Indication: INTENTIONAL SELF-INJURY
     Route: 048
     Dates: start: 20130921, end: 20130921
  3. BISOPROLOL HEMIFUMARATE [Suspect]
     Active Substance: BISOPROLOL
     Indication: INTENTIONAL SELF-INJURY
     Route: 048
     Dates: start: 20130921, end: 20130921
  4. FRISIUM - 10 MG CAPSULE RIGIDE - SANOFI- AVENTIS S.P.A. [Suspect]
     Active Substance: CLOBAZAM
     Indication: INTENTIONAL SELF-INJURY
     Route: 048
     Dates: start: 20130921, end: 20130921
  5. LISINOPRIL. [Suspect]
     Active Substance: LISINOPRIL
     Indication: INTENTIONAL SELF-INJURY
     Route: 048
     Dates: start: 20130921, end: 20130921
  6. FINASTERIDE. [Suspect]
     Active Substance: FINASTERIDE
     Indication: INTENTIONAL SELF-INJURY
     Route: 048
     Dates: start: 20130921, end: 20130921
  7. ZARELIS - 150 MG COMPRESSE A RILASCIO PROLUNGATO - ITALFARMACO S.P.A. [Suspect]
     Active Substance: VENLAFAXINE HYDROCHLORIDE
     Indication: INTENTIONAL SELF-INJURY
     Route: 048
     Dates: start: 20130921, end: 20130921

REACTIONS (3)
  - Loss of consciousness [Recovering/Resolving]
  - Vomiting [Recovering/Resolving]
  - Drug abuse [Recovering/Resolving]

NARRATIVE: CASE EVENT DATE: 20130921
